FAERS Safety Report 24454437 (Version 2)
Quarter: 2024Q4

REPORT INFORMATION
  Report Type: Report from Study
  Country: CA (occurrence: CA)
  Receive Date: 20241017
  Receipt Date: 20241018
  Transmission Date: 20250114
  Serious: No
  Sender: ROCHE
  Company Number: CA-ROCHE-3457098

PATIENT
  Age: 57 Year
  Sex: Male
  Weight: 85.2 kg

DRUGS (11)
  1. RITUXAN [Suspect]
     Active Substance: RITUXIMAB
     Indication: Polymyositis
     Dosage: 500MG/50ML
     Route: 041
     Dates: start: 20200729, end: 20230515
  2. RITUXAN [Suspect]
     Active Substance: RITUXIMAB
     Indication: Rheumatoid arthritis
     Route: 042
     Dates: start: 20231110
  3. RITUXAN [Suspect]
     Active Substance: RITUXIMAB
     Indication: Systemic lupus erythematosus
  4. ACETAMINOPHEN [Concomitant]
     Active Substance: ACETAMINOPHEN
     Route: 048
     Dates: start: 20231110
  5. ACTONEL [Concomitant]
     Active Substance: RISEDRONATE SODIUM
  6. DIPHENHYDRAMINE [Concomitant]
     Active Substance: DIPHENHYDRAMINE
     Route: 048
     Dates: start: 20231110
  7. METHOTREXATE [Concomitant]
     Active Substance: METHOTREXATE
  8. METHYLPREDNISOLONE [Concomitant]
     Active Substance: METHYLPREDNISOLONE
     Route: 042
  9. PLAQUENIL [Concomitant]
     Active Substance: HYDROXYCHLOROQUINE SULFATE
  10. PREDNISONE [Concomitant]
     Active Substance: PREDNISONE
  11. XARELTO [Concomitant]
     Active Substance: RIVAROXABAN

REACTIONS (4)
  - Blood pressure systolic increased [Unknown]
  - Weight increased [Unknown]
  - Off label use [Unknown]
  - Oxygen saturation decreased [Unknown]

NARRATIVE: CASE EVENT DATE: 20231110
